FAERS Safety Report 5158289-X (Version None)
Quarter: 2006Q4

REPORT INFORMATION
  Report Type: 
  Country: None (occurrence: None)
  Receive Date: 20061121
  Receipt Date: 20061121
  Transmission Date: 20070319
  Serious: Yes (Other)
  Sender: FDA-Public Use
  Company Number: None

PATIENT
  Age: 32 Year
  Sex: Male
  Weight: 66.6788 kg

DRUGS (1)
  1. LEVOFLOXACIN [Suspect]
     Indication: SINUSITIS
     Dosage: 750MG DAILY PO
     Route: 048
     Dates: start: 20061117, end: 20061120

REACTIONS (6)
  - ARTHRALGIA [None]
  - CHEST PAIN [None]
  - HEART RATE INCREASED [None]
  - INSOMNIA [None]
  - MYALGIA [None]
  - PANIC ATTACK [None]
